FAERS Safety Report 8842933 (Version 1)
Quarter: 2012Q4

REPORT INFORMATION
  Report Type: 
  Country: US (occurrence: US)
  Receive Date: 20121016
  Receipt Date: 20121016
  Transmission Date: 20130627
  Serious: Yes (Other)
  Sender: FDA-Public Use
  Company Number: US-CELGENEUS-163-21880-12101345

PATIENT
  Sex: Female

DRUGS (1)
  1. REVLIMID [Suspect]
     Indication: MALIGNANT NEOPLASM OF BRAIN
     Dosage: 50 Milligram
     Route: 048
     Dates: start: 201206

REACTIONS (2)
  - Electrocardiogram QT prolonged [Unknown]
  - Dyspnoea exertional [Unknown]
